FAERS Safety Report 22367076 (Version 2)
Quarter: 2024Q2

REPORT INFORMATION
  Report Type: Report from Study
  Country: NL (occurrence: NL)
  Receive Date: 20230525
  Receipt Date: 20240502
  Transmission Date: 20240715
  Serious: Yes (Other)
  Sender: FDA-Public Use
  Company Number: NL-ABBVIE-5179787

PATIENT
  Sex: Female

DRUGS (1)
  1. LEUPROLIDE ACETATE [Suspect]
     Active Substance: ISOPROPYL ALCOHOL\LEUPROLIDE ACETATE
     Indication: Product used for unknown indication
     Route: 058

REACTIONS (2)
  - Endometriosis [Not Recovered/Not Resolved]
  - Condition aggravated [Not Recovered/Not Resolved]
